FAERS Safety Report 22623256 (Version 1)
Quarter: 2023Q2

REPORT INFORMATION
  Report Type: Report from Study
  Country: US (occurrence: US)
  Receive Date: 20230621
  Receipt Date: 20230621
  Transmission Date: 20230721
  Serious: Yes (Hospitalization)
  Sender: FDA-Public Use
  Company Number: US-AMGEN-USACT2023104691

PATIENT
  Age: 58 Year
  Sex: Female
  Weight: 98.4 kg

DRUGS (3)
  1. BLINATUMOMAB [Suspect]
     Active Substance: BLINATUMOMAB
     Indication: B precursor type acute leukaemia
     Dosage: 9 UG/DAY IV CONTINUOUS INFUSION ON DAYS 1-7 (C1)/ 28UG/DAY IV CONTINUOUS INFUSION (C1)/ 28UG/DAY IV
     Route: 042
     Dates: start: 20180220
  2. BLINATUMOMAB [Suspect]
     Active Substance: BLINATUMOMAB
     Dosage: 9 UG/DAY IV CONTINUOUS INFUSION ON DAYS 1-7 (C1)/ 28UG/DAY IV CONTINUOUS INFUSION (C1)/ 28UG/DAY IV
     Route: 042
     Dates: end: 20180311
  3. NIVOLUMAB [Suspect]
     Active Substance: NIVOLUMAB
     Indication: B precursor type acute leukaemia
     Dosage: 240MG IV OVER 60 MINUTES ON DAY I I AND THEN EVERY TWO WEEKS/ TOTAL DOSE: 240 MG
     Route: 042

REACTIONS (2)
  - Pruritus [Recovering/Resolving]
  - Rash maculo-papular [Recovering/Resolving]

NARRATIVE: CASE EVENT DATE: 20180311
